FAERS Safety Report 4944055-4 (Version None)
Quarter: 2006Q1

REPORT INFORMATION
  Report Type: 
  Country: None (occurrence: None)
  Receive Date: 20060315
  Receipt Date: 20060309
  Transmission Date: 20060701
  Serious: Yes (Other)
  Sender: FDA-Public Use
  Company Number: US-JNJFOC-20060303145

PATIENT
  Age: 83 Year
  Sex: Female

DRUGS (5)
  1. ARESTIN [Suspect]
     Indication: PERIODONTITIS
  2. PREMARIN [Concomitant]
  3. CARDIZEM [Concomitant]
  4. ZANTAC [Concomitant]
  5. TOPBRADEX [Concomitant]

REACTIONS (2)
  - GINGIVAL ULCERATION [None]
  - ORAL MUCOSAL EXFOLIATION [None]
